FAERS Safety Report 7164006-4 (Version None)
Quarter: 2010Q4

REPORT INFORMATION
  Report Type: 
  Country: None (occurrence: None)
  Receive Date: 20101215
  Receipt Date: 20101208
  Transmission Date: 20110411
  Serious: Yes (Other)
  Sender: FDA-Public Use
  Company Number: A0893031A

PATIENT
  Age: 37 Year
  Sex: Female
  Weight: 81.4 kg

DRUGS (3)
  1. VERAMYST [Suspect]
     Indication: RHINITIS ALLERGIC
     Route: 065
     Dates: start: 20100915, end: 20101101
  2. XYZAL [Concomitant]
     Indication: RHINITIS ALLERGIC
  3. OMNICEF [Concomitant]
     Indication: RHINITIS ALLERGIC

REACTIONS (1)
  - CHORIORETINOPATHY [None]
